FAERS Safety Report 15626868 (Version 1)
Quarter: 2018Q4

REPORT INFORMATION
  Report Type: Spontaneous
  Country: US (occurrence: US)
  Receive Date: 20181116
  Receipt Date: 20181116
  Transmission Date: 20190205
  Serious: Yes (Other)
  Sender: FDA-Public Use
  Company Number: US-MYLANLABS-2018M1085365

PATIENT
  Sex: Female

DRUGS (8)
  1. CARBAMAZEPINE. [Suspect]
     Active Substance: CARBAMAZEPINE
     Dosage: UNSPECIFIED UP-TITRATED DOSAGE
     Route: 065
  2. CARBAMAZEPINE. [Suspect]
     Active Substance: CARBAMAZEPINE
     Indication: EPILEPSY
     Dosage: AFTER UNSPECIFIED DOSAGE, THE DRUG WAS UP-TITRATED
     Route: 065
  3. LEVETIRACETAM. [Suspect]
     Active Substance: LEVETIRACETAM
     Indication: EPILEPSY
     Dosage: AFTER UNSPECIFIED DOSAGE, THE DRUG WAS UP-TITRATED
     Route: 065
  4. CLONAZEPAM. [Suspect]
     Active Substance: CLONAZEPAM
     Dosage: UNSPECIFIED UP-TITRATED DOSAGE
     Route: 065
  5. LACOSAMIDE. [Suspect]
     Active Substance: LACOSAMIDE
     Dosage: UNSPECIFIED UP-TITRATED DOSAGE
     Route: 065
  6. CLONAZEPAM. [Suspect]
     Active Substance: CLONAZEPAM
     Indication: EPILEPSY
     Dosage: AFTER UNSPECIFIED DOSAGE, THE DRUG WAS UP-TITRATED
     Route: 065
  7. LEVETIRACETAM. [Suspect]
     Active Substance: LEVETIRACETAM
     Dosage: UNSPECIFIED UP-TITRATED DOSAGE
     Route: 065
  8. LACOSAMIDE. [Suspect]
     Active Substance: LACOSAMIDE
     Indication: EPILEPSY
     Dosage: AFTER UNSPECIFIED DOSAGE, THE DRUG WAS UP-TITRATED
     Route: 065

REACTIONS (1)
  - Drug ineffective [Unknown]
